FAERS Safety Report 5133123-2 (Version None)
Quarter: 2006Q4

REPORT INFORMATION
  Report Type: 
  Country: None (occurrence: None)
  Receive Date: 20061017
  Receipt Date: 20061010
  Transmission Date: 20070319
  Serious: Yes (Hospitalization, Other)
  Sender: FDA-Public Use
  Company Number: HQWYE608413SEP06

PATIENT
  Age: 19 Year
  Sex: Female

DRUGS (1)
  1. TRIQUILAR-28 (LEVONORGESTREL/ETHINYL ESTRADIOL/INERT, TABLET) [Suspect]
     Indication: DYSMENORRHOEA
     Dosage: 1 DF, ONCE DAILY; ORAL
     Route: 048
     Dates: start: 20060601, end: 20060620

REACTIONS (9)
  - BLOOD PRESSURE DECREASED [None]
  - DEHYDRATION [None]
  - GENERAL PHYSICAL CONDITION ABNORMAL [None]
  - LOSS OF CONSCIOUSNESS [None]
  - NASOPHARYNGITIS [None]
  - NAUSEA [None]
  - PALPITATIONS [None]
  - PLEURITIC PAIN [None]
  - PULMONARY ARTERY THROMBOSIS [None]
